FAERS Safety Report 6916722-4 (Version None)
Quarter: 2010Q3

REPORT INFORMATION
  Report Type: 
  Country: None (occurrence: None)
  Receive Date: 20100809
  Receipt Date: 20100809
  Transmission Date: 20110219
  Serious: Yes (Hospitalization)
  Sender: FDA-Public Use
  Company Number: None

PATIENT
  Age: 53 Year
  Sex: Male
  Weight: 89 kg

DRUGS (1)
  1. TERAZOSIN HCL [Suspect]
     Indication: OBSTRUCTIVE UROPATHY
     Dates: start: 20100617, end: 20100730

REACTIONS (2)
  - DIZZINESS [None]
  - HYPOTENSION [None]
